FAERS Safety Report 5849896-7 (Version None)
Quarter: 2008Q3

REPORT INFORMATION
  Report Type: 
  Country: None (occurrence: None)
  Receive Date: 20080815
  Receipt Date: 20080806
  Transmission Date: 20090109
  Serious: Yes (Hospitalization)
  Sender: FDA-Public Use
  Company Number: 2008AL009249

PATIENT
  Age: 76 Year
  Sex: Male
  Weight: 92.9874 kg

DRUGS (4)
  1. DIGOXIN [Suspect]
     Indication: HEART RATE IRREGULAR
     Dosage: DAILY, PO
     Route: 048
  2. CRESTOR [Concomitant]
  3. COUMADIN [Concomitant]
  4. TOPROL-XL [Concomitant]

REACTIONS (5)
  - BLOOD PRESSURE DECREASED [None]
  - FALL [None]
  - HEART RATE DECREASED [None]
  - LOSS OF CONSCIOUSNESS [None]
  - ROAD TRAFFIC ACCIDENT [None]
